FAERS Safety Report 14603094 (Version 1)
Quarter: 2018Q1

REPORT INFORMATION
  Report Type: Spontaneous
  Country: US (occurrence: US)
  Receive Date: 20180306
  Receipt Date: 20180306
  Transmission Date: 20180509
  Serious: Yes (Hospitalization, Other)
  Sender: FDA-Public Use
  Company Number: US-RECORDATI RARE DISEASES INC.-US-R13005-18-00047

PATIENT
  Age: 2 Year
  Sex: Female

DRUGS (5)
  1. SUCCIMER [Suspect]
     Active Substance: SUCCIMER
     Indication: METAL POISONING
     Route: 048
  2. PENICILLIN [Concomitant]
     Active Substance: PENICILLIN
     Indication: SICKLE CELL DISEASE
     Route: 065
  3. HYDROXYUREA. [Concomitant]
     Active Substance: HYDROXYUREA
     Indication: SICKLE CELL DISEASE
     Route: 065
  4. CA EDTA [Concomitant]
     Indication: METAL POISONING
     Route: 065
  5. SUCCIMER [Suspect]
     Active Substance: SUCCIMER
     Route: 048

REACTIONS (4)
  - Off label use [Unknown]
  - Treatment noncompliance [Unknown]
  - Blood lead increased [Recovering/Resolving]
  - Condition aggravated [Recovering/Resolving]
